FAERS Safety Report 16219121 (Version 1)
Quarter: 2019Q2

REPORT INFORMATION
  Report Type: Spontaneous
  Country: US (occurrence: US)
  Receive Date: 20190419
  Receipt Date: 20190419
  Transmission Date: 20190711
  Serious: No
  Sender: FDA-Public Use
  Company Number: US-PFIZER INC-2019165004

PATIENT

DRUGS (3)
  1. IRON [Suspect]
     Active Substance: IRON
     Dosage: UNK
  2. DEXTRAN [Suspect]
     Active Substance: DEXTRAN
  3. NITROGLYCERIN. [Suspect]
     Active Substance: NITROGLYCERIN

REACTIONS (1)
  - Drug hypersensitivity [Unknown]
